FAERS Safety Report 6694784-X (Version None)
Quarter: 2010Q2

REPORT INFORMATION
  Report Type: 
  Country: None (occurrence: None)
  Receive Date: 20100423
  Receipt Date: 20100419
  Transmission Date: 20101027
  Serious: Yes (Hospitalization)
  Sender: FDA-Public Use
  Company Number: D0067307A

PATIENT
  Age: 65 Year
  Sex: Male
  Weight: 94 kg

DRUGS (11)
  1. ZOFRAN [Suspect]
     Dosage: 16MG PER DAY
     Route: 048
     Dates: start: 20090101
  2. PALLADONE [Suspect]
     Indication: CANCER PAIN
     Dosage: 8MG TWICE PER DAY
     Route: 048
     Dates: start: 20090620
  3. SEVREDOL [Suspect]
     Indication: CANCER PAIN
     Route: 048
  4. TAXOL [Suspect]
     Dosage: 100MGM2 PER DAY
     Route: 042
     Dates: start: 20090601
  5. PANTOZOL [Concomitant]
     Dosage: 40MG TWICE PER DAY
     Route: 048
  6. FOLIC ACID [Concomitant]
     Dosage: 5MG PER DAY
     Route: 048
     Dates: start: 20090601
  7. BISOPROLOL [Concomitant]
     Dosage: 5MG PER DAY
     Route: 048
     Dates: start: 20000101
  8. LORAZEPAM [Concomitant]
     Dosage: .5MG THREE TIMES PER DAY
     Route: 048
     Dates: start: 20040101
  9. GABAPENTIN [Concomitant]
     Indication: CANCER PAIN
     Dosage: 100MG THREE TIMES PER DAY
     Route: 048
     Dates: start: 20070101
  10. MEGESTAT [Concomitant]
     Dosage: 160MG PER DAY
     Route: 048
     Dates: start: 20090101
  11. LAXOBERAL [Concomitant]
     Dosage: 15DROP THREE TIMES PER DAY
     Route: 048
     Dates: start: 20090601

REACTIONS (3)
  - ABDOMINAL PAIN [None]
  - DRUG INTERACTION [None]
  - ILEUS [None]
